FAERS Safety Report 6036190-7 (Version None)
Quarter: 2009Q1

REPORT INFORMATION
  Report Type: 
  Country: None (occurrence: None)
  Receive Date: 20090113
  Receipt Date: 20090106
  Transmission Date: 20090719
  Serious: Yes (Death, Other)
  Sender: FDA-Public Use
  Company Number: NL-ROXANE LABORATORIES, INC.-2009-RO-00019RO

PATIENT
  Age: 91 Year
  Sex: Male

DRUGS (10)
  1. FUROSEMIDE [Suspect]
     Indication: CARDIAC FAILURE
     Dosage: 40MG
     Dates: start: 20010101
  2. FUROSEMIDE [Suspect]
     Dosage: 80MG
  3. FUROSEMIDE [Suspect]
     Dosage: 40MG
  4. DIGOXIN [Suspect]
     Indication: CARDIAC FAILURE
     Dosage: 62.5MCG
  5. DIGOXIN [Suspect]
     Indication: ATRIAL FIBRILLATION
  6. ENALAPRIL MALEATE [Suspect]
     Indication: CARDIAC FAILURE
     Dosage: 5MG
     Dates: start: 20010101
  7. ACENOCOUMAROL [Suspect]
     Indication: CARDIAC FAILURE
  8. ACENOCOUMAROL [Suspect]
     Indication: ATRIAL FIBRILLATION
  9. SPIRONOLACTONE [Suspect]
     Indication: CARDIAC FAILURE
     Dosage: 25MG
  10. SPIRONOLACTONE [Suspect]
     Indication: ATRIAL FIBRILLATION

REACTIONS (8)
  - ATRIAL FIBRILLATION [None]
  - BLOOD CREATININE INCREASED [None]
  - BLOOD UREA INCREASED [None]
  - CARDIAC FAILURE [None]
  - HYPERKALAEMIA [None]
  - LOSS OF CONSCIOUSNESS [None]
  - PULMONARY OEDEMA [None]
  - RENAL IMPAIRMENT [None]
